FAERS Safety Report 22136400 (Version 1)
Quarter: 2023Q1

REPORT INFORMATION
  Report Type: Spontaneous
  Country: CN (occurrence: CN)
  Receive Date: 20230324
  Receipt Date: 20230324
  Transmission Date: 20230417
  Serious: Yes (Other)
  Sender: FDA-Public Use
  Company Number: CN-BAXTER-2023BAX015912

PATIENT
  Age: 22 Year
  Sex: Male

DRUGS (6)
  1. CYCLOPHOSPHAMIDE [Suspect]
     Active Substance: CYCLOPHOSPHAMIDE
     Indication: Precursor B-lymphoblastic lymphoma
     Dosage: 4 ROUNDS OF HYPER-CVAD CHEMOTHERAPY
     Route: 065
     Dates: start: 2022, end: 202212
  2. MANNITOL [Suspect]
     Active Substance: MANNITOL
     Indication: Visual acuity reduced
     Route: 065
  3. VINCRISTINE [Suspect]
     Active Substance: VINCRISTINE
     Indication: Precursor B-lymphoblastic lymphoma
     Dosage: 4 ROUNDS OF HYPER-CVAD CHEMOTHERAPY
     Route: 065
     Dates: start: 2022, end: 202212
  4. DOXORUBICIN [Suspect]
     Active Substance: DOXORUBICIN
     Indication: Precursor B-lymphoblastic lymphoma
     Dosage: 4 ROUNDS OF HYPER-CVAD CHEMOTHERAPY
     Route: 065
     Dates: start: 2022, end: 202212
  5. DEXAMETHASONE [Suspect]
     Active Substance: DEXAMETHASONE
     Indication: Precursor B-lymphoblastic lymphoma
     Dosage: 4 ROUNDS OF HYPER-CVAD CHEMOTHERAPY
     Route: 065
     Dates: start: 2022, end: 202212
  6. DEXAMETHASONE [Concomitant]
     Active Substance: DEXAMETHASONE
     Indication: Visual acuity reduced
     Dosage: RAPID INFUSION
     Route: 065

REACTIONS (2)
  - Pancreatitis acute [Unknown]
  - Anaemia [Unknown]

NARRATIVE: CASE EVENT DATE: 20220101
